FAERS Safety Report 8069506-0 (Version None)
Quarter: 2012Q1

REPORT INFORMATION
  Report Type: 
  Country: None (occurrence: None)
  Receive Date: 20120125
  Receipt Date: 20120117
  Transmission Date: 20120608
  Serious: Yes (Other)
  Sender: FDA-Public Use
  Company Number: FR-JNJFOC-20120106167

PATIENT
  Age: 24 Year
  Sex: Female

DRUGS (4)
  1. IMURAN [Concomitant]
     Indication: CROHN'S DISEASE
     Dates: start: 20040101
  2. REMICADE [Suspect]
     Indication: CROHN'S DISEASE
     Route: 042
     Dates: start: 20081201
  3. REMICADE [Suspect]
     Dosage: 20TH INFUSION
     Route: 042
     Dates: start: 20111017
  4. PENTASA [Concomitant]
     Indication: CROHN'S DISEASE
     Dates: start: 20080501

REACTIONS (1)
  - ECZEMA [None]
